FAERS Safety Report 25208407 (Version 1)
Quarter: 2025Q2

REPORT INFORMATION
  Report Type: Spontaneous
  Country: PR (occurrence: PR)
  Receive Date: 20250417
  Receipt Date: 20250417
  Transmission Date: 20250717
  Serious: Yes (Hospitalization, Other)
  Sender: BRISTOL MYERS SQUIBB
  Company Number: PR-BRISTOL-MYERS SQUIBB COMPANY-2025-052152

PATIENT
  Age: 24 Year
  Sex: Male

DRUGS (2)
  1. COBENFY [Suspect]
     Active Substance: TROSPIUM CHLORIDE\XANOMELINE
     Indication: Schizophrenia
  2. COBENFY [Suspect]
     Active Substance: TROSPIUM CHLORIDE\XANOMELINE

REACTIONS (6)
  - Diarrhoea [Unknown]
  - Vomiting [Unknown]
  - Somnolence [Unknown]
  - Schizophrenia [Unknown]
  - Negative thoughts [Unknown]
  - Off label use [Unknown]
